FAERS Safety Report 9102403 (Version 1)
Quarter: 2013Q1

REPORT INFORMATION
  Report Type: Spontaneous
  Country: US (occurrence: US)
  Receive Date: 20130219
  Receipt Date: 20130219
  Transmission Date: 20140127
  Serious: Yes (Other)
  Sender: FDA-Public Use
  Company Number: US-JNJFOC-20130206332

PATIENT
  Age: 44 Year
  Sex: Female

DRUGS (1)
  1. LEVAQUIN [Suspect]
     Indication: INFECTION
     Route: 048
     Dates: start: 2013, end: 2013

REACTIONS (3)
  - Bedridden [Unknown]
  - Abasia [Unknown]
  - Arthralgia [Recovering/Resolving]
